FAERS Safety Report 4320378-7 (Version None)
Quarter: 2004Q1

REPORT INFORMATION
  Report Type: 
  Country: None (occurrence: None)
  Receive Date: 20040317
  Receipt Date: 20040302
  Transmission Date: 20041129
  Serious: Yes (Hospitalization)
  Sender: FDA-Public Use
  Company Number: 2004AP01287

PATIENT
  Age: 71 Year
  Sex: Male

DRUGS (2)
  1. OMEPRAZOLE [Suspect]
     Dates: start: 20040118
  2. MICARDIS [Suspect]
     Dosage: 20 MG DAILY PO
     Route: 048
     Dates: start: 20040118

REACTIONS (1)
  - BLOOD CREATINE PHOSPHOKINASE INCREASED [None]
